FAERS Safety Report 5843549-7 (Version None)
Quarter: 2008Q3

REPORT INFORMATION
  Report Type: 
  Country: None (occurrence: None)
  Receive Date: 20080813
  Receipt Date: 20080805
  Transmission Date: 20090109
  Serious: Yes (Other)
  Sender: FDA-Public Use
  Company Number: US-MERCK-0808USA01149

PATIENT
  Age: 36 Year
  Sex: Male

DRUGS (5)
  1. DECADRON SRC [Suspect]
     Indication: T-CELL LYMPHOMA
     Route: 048
  2. CYCLOPHOSPHAMIDE [Suspect]
     Indication: T-CELL LYMPHOMA
     Route: 065
  3. VINCRISTINE SULFATE [Suspect]
     Indication: T-CELL LYMPHOMA
     Route: 065
  4. CYTARABINE [Suspect]
     Indication: T-CELL LYMPHOMA
     Route: 065
  5. METHOTREXATE [Suspect]
     Indication: T-CELL LYMPHOMA
     Route: 065

REACTIONS (2)
  - DRUG INEFFECTIVE [None]
  - T-CELL LYMPHOMA RECURRENT [None]
